FAERS Safety Report 10757280 (Version 3)
Quarter: 2015Q1

REPORT INFORMATION
  Report Type: Spontaneous
  Country: IT (occurrence: None)
  Receive Date: 20150130
  Receipt Date: 20150318
  Transmission Date: 20150721
  Serious: Yes (Other)
  Sender: FDA-Public Use
  Company Number: FK201500427

PATIENT
  Age: 76 Year
  Sex: Female
  Weight: 70 kg

DRUGS (7)
  1. AVASTIN [Suspect]
     Active Substance: BEVACIZUMAB
     Indication: RECTAL CANCER METASTATIC
     Dosage: 350 MG, CYCLICAL, INTRAVENOUS (NOT OTHERWISE SPECIFIED)?
     Route: 042
     Dates: start: 20140626, end: 20141211
  2. CARDURA [Concomitant]
     Active Substance: DOXAZOSIN MESYLATE
  3. CARDICOR (BISOPROLOL FUMARATE) [Concomitant]
  4. SIVASTIN (SIMVASTATIN) [Concomitant]
  5. LEVOFOLINIC ACID (LEVOFOLINIC ACID) [Concomitant]
  6. OXALIPLATIN (OXALIPLATIN) [Suspect]
     Active Substance: OXALIPLATIN
     Indication: RECTAL CANCER METASTATIC
     Dosage: 75 MG, CYCLICAL, INTRAVENOUS (NOT OTHERWISE SPECIFIED)?
     Route: 042
     Dates: start: 20140626, end: 20141211
  7. FLUOROURACIL (FLUOROURACIL) [Suspect]
     Active Substance: FLUOROURACIL
     Indication: RECTAL CANCER METASTATIC
     Dosage: 700 MG, CYCLICAL, INTRAVENOUS BOLUS ?
     Route: 040
     Dates: start: 20140626, end: 20141211

REACTIONS (1)
  - Hypertensive crisis [None]

NARRATIVE: CASE EVENT DATE: 20141019
